FAERS Safety Report 25660723 (Version 1)
Quarter: 2025Q3

REPORT INFORMATION
  Report Type: Spontaneous
  Country: EU (occurrence: EU)
  Receive Date: 20250808
  Receipt Date: 20250808
  Transmission Date: 20251021
  Serious: Yes (Other)
  Sender: RANBAXY
  Company Number: EU-SUN PHARMACEUTICAL INDUSTRIES LTD-2025RR-521219

PATIENT
  Age: 42 Year
  Sex: Female
  Weight: 70.5 kg

DRUGS (4)
  1. AZITHROMYCIN [Suspect]
     Active Substance: AZITHROMYCIN
     Indication: Bronchiectasis
     Route: 048
     Dates: start: 202201
  2. DESLORATADINE [Suspect]
     Active Substance: DESLORATADINE
     Indication: Hypersensitivity
     Dosage: 1 DOSAGE FORM, DAILY
     Route: 048
  3. FLUTICASONE FUROATE\VILANTEROL TRIFENATATE [Suspect]
     Active Substance: FLUTICASONE FUROATE\VILANTEROL TRIFENATATE
     Indication: Bronchiectasis
     Route: 055
  4. PULMOZYME [Suspect]
     Active Substance: DORNASE ALFA
     Indication: Bronchiectasis
     Route: 055
     Dates: start: 202212

REACTIONS (1)
  - Neutropenia [Not Recovered/Not Resolved]

NARRATIVE: CASE EVENT DATE: 20240101
